FAERS Safety Report 10077212 (Version 2)
Quarter: 2014Q2

REPORT INFORMATION
  Report Type: Spontaneous
  Country: US (occurrence: US)
  Receive Date: 20140414
  Receipt Date: 20140414
  Transmission Date: 20141212
  Serious: No
  Sender: FDA-Public Use
  Company Number: US-BANPHARM-20130938

PATIENT
  Sex: Female
  Weight: 63.5 kg

DRUGS (3)
  1. ALEVE LIQUID GELS 220MG [Suspect]
     Indication: MYALGIA
     Dosage: 1 DF, QD,
     Route: 048
     Dates: end: 20130225
  2. HIGH CHOLESTEROL MEDICATION [Concomitant]
  3. HIGH BLOOD PRESSURE MEDICATION [Concomitant]

REACTIONS (1)
  - Rash [Recovering/Resolving]
